FAERS Safety Report 20485330 (Version 3)
Quarter: 2022Q3

REPORT INFORMATION
  Report Type: Spontaneous
  Country: US (occurrence: None)
  Receive Date: 20220217
  Receipt Date: 20220914
  Transmission Date: 20221026
  Serious: Yes (Other)
  Sender: FDA-Public Use
  Company Number: 2022A066263

PATIENT
  Age: 48 Year
  Sex: Female
  Weight: 105.2 kg

DRUGS (65)
  1. PRILOSEC [Suspect]
     Active Substance: OMEPRAZOLE MAGNESIUM
     Indication: Gastrooesophageal reflux disease
     Route: 048
     Dates: start: 2010, end: 2016
  2. PRILOSEC [Suspect]
     Active Substance: OMEPRAZOLE MAGNESIUM
     Indication: Gastrooesophageal reflux disease
     Route: 048
     Dates: start: 2010, end: 2016
  3. PRILOSEC [Suspect]
     Active Substance: OMEPRAZOLE MAGNESIUM
     Indication: Gastrooesophageal reflux disease
     Dosage: GENERIC
     Route: 065
     Dates: start: 2010, end: 2012
  4. PRILOSEC [Suspect]
     Active Substance: OMEPRAZOLE MAGNESIUM
     Indication: Gastrooesophageal reflux disease
     Dosage: GENERIC
     Route: 065
     Dates: start: 2010, end: 2012
  5. PRILOSEC [Suspect]
     Active Substance: OMEPRAZOLE MAGNESIUM
     Indication: Gastrooesophageal reflux disease
     Dosage: GENERIC
     Route: 065
     Dates: start: 2015, end: 2016
  6. PRILOSEC [Suspect]
     Active Substance: OMEPRAZOLE MAGNESIUM
     Indication: Gastrooesophageal reflux disease
     Dosage: GENERIC
     Route: 065
     Dates: start: 2015, end: 2016
  7. PRILOSEC OTC [Suspect]
     Active Substance: OMEPRAZOLE MAGNESIUM
     Indication: Gastrooesophageal reflux disease
     Route: 048
     Dates: start: 2008, end: 2016
  8. PRILOSEC OTC [Suspect]
     Active Substance: OMEPRAZOLE MAGNESIUM
     Indication: Gastrooesophageal reflux disease
     Route: 048
     Dates: start: 2008, end: 2016
  9. NEXIUM [Suspect]
     Active Substance: ESOMEPRAZOLE MAGNESIUM
     Indication: Gastrooesophageal reflux disease
     Route: 048
  10. NEXIUM [Suspect]
     Active Substance: ESOMEPRAZOLE MAGNESIUM
     Indication: Gastrooesophageal reflux disease
     Route: 048
  11. PANTOPRAZOLE [Suspect]
     Active Substance: PANTOPRAZOLE
     Indication: Gastrooesophageal reflux disease
     Dosage: GENERIC
     Route: 065
     Dates: start: 2014
  12. PANTOPRAZOLE [Suspect]
     Active Substance: PANTOPRAZOLE
     Indication: Gastrooesophageal reflux disease
     Dosage: GENERIC
     Route: 065
     Dates: start: 2014
  13. PANTOPRAZOLE [Suspect]
     Active Substance: PANTOPRAZOLE
     Indication: Gastrooesophageal reflux disease
     Dosage: GENERIC
     Route: 065
     Dates: start: 2020
  14. PANTOPRAZOLE [Suspect]
     Active Substance: PANTOPRAZOLE
     Indication: Gastrooesophageal reflux disease
     Dosage: GENERIC
     Route: 065
     Dates: start: 2020
  15. METHYLPREDNISOLONE [Concomitant]
     Active Substance: METHYLPREDNISOLONE
  16. LEVOFLOXACIN [Concomitant]
     Active Substance: LEVOFLOXACIN
  17. IPRATROPIUM [Concomitant]
     Active Substance: IPRATROPIUM
  18. ACETAMINOPHEN [Concomitant]
     Active Substance: ACETAMINOPHEN
  19. OXYCODONE [Concomitant]
     Active Substance: OXYCODONE
  20. TETRACAINE [Concomitant]
     Active Substance: TETRACAINE
  21. MORPHINE [Concomitant]
     Active Substance: MORPHINE
  22. PREDNISONE [Concomitant]
     Active Substance: PREDNISONE
  23. ISOSORBIDE [Concomitant]
     Active Substance: ISOSORBIDE
  24. SUCRALFATE [Concomitant]
     Active Substance: SUCRALFATE
  25. TOPIRAMATE [Concomitant]
     Active Substance: TOPIRAMATE
  26. LEVETIRACETAM [Concomitant]
     Active Substance: LEVETIRACETAM
  27. DALIRESP [Concomitant]
     Active Substance: ROFLUMILAST
  28. AZITHROMYCIN [Concomitant]
     Active Substance: AZITHROMYCIN
  29. QUETIAPINE [Concomitant]
     Active Substance: QUETIAPINE
  30. POLYETHYLENE GLYCOL [Concomitant]
     Active Substance: POLYETHYLENE GLYCOL
  31. VALPROIC ACID [Concomitant]
     Active Substance: VALPROIC ACID
  32. BENZONATATE [Concomitant]
     Active Substance: BENZONATATE
  33. MECLIZINE [Concomitant]
     Active Substance: MECLIZINE HYDROCHLORIDE
  34. METOPROLOL [Concomitant]
     Active Substance: METOPROLOL
  35. PROAIR HFA [Concomitant]
     Active Substance: ALBUTEROL SULFATE
  36. FAMOTIDINE [Concomitant]
     Active Substance: FAMOTIDINE
  37. DICYCLOMINE [Concomitant]
     Active Substance: DICYCLOMINE HYDROCHLORIDE
  38. TRAMADOL [Concomitant]
     Active Substance: TRAMADOL
  39. LORAZEPAM [Concomitant]
     Active Substance: LORAZEPAM
  40. DICLOFENAC [Concomitant]
     Active Substance: DICLOFENAC
  41. ONDANSETRON [Concomitant]
     Active Substance: ONDANSETRON
  42. BUSPIRONE [Concomitant]
     Active Substance: BUSPIRONE HYDROCHLORIDE
  43. AMLODIPINE [Concomitant]
     Active Substance: AMLODIPINE BESYLATE
  44. HYOSCYAMINE [Concomitant]
     Active Substance: HYOSCYAMINE
  45. SERTRALINE [Concomitant]
     Active Substance: SERTRALINE HYDROCHLORIDE
  46. ZOLPIDEM [Concomitant]
     Active Substance: ZOLPIDEM TARTRATE
  47. CIPROFLOXACIN [Concomitant]
     Active Substance: CIPROFLOXACIN
  48. SYMBICORT [Concomitant]
     Active Substance: BUDESONIDE\FORMOTEROL FUMARATE DIHYDRATE
  49. ALBUTEROL [Concomitant]
     Active Substance: ALBUTEROL
  50. CARBAMAZEPINE [Concomitant]
     Active Substance: CARBAMAZEPINE
  51. FUROSEMIDE [Concomitant]
     Active Substance: FUROSEMIDE
  52. ESCITALOPRAM [Concomitant]
     Active Substance: ESCITALOPRAM OXALATE
  53. OLANZAPINE [Concomitant]
     Active Substance: OLANZAPINE
  54. FLUOXETINE [Concomitant]
     Active Substance: FLUOXETINE HYDROCHLORIDE
  55. IBUPROFEN [Concomitant]
     Active Substance: IBUPROFEN
  56. CLOPIDOGREL [Concomitant]
     Active Substance: CLOPIDOGREL BISULFATE
  57. METRONIDAZOLE [Concomitant]
     Active Substance: METRONIDAZOLE
  58. TETRACYCLINE [Concomitant]
     Active Substance: TETRACYCLINE
  59. FERROUS SULFATE [Concomitant]
     Active Substance: FERROUS SULFATE
  60. CLINDAMYCIN [Concomitant]
     Active Substance: CLINDAMYCIN
  61. BACLOFEN [Concomitant]
     Active Substance: BACLOFEN
  62. CEFTRIAXONE [Concomitant]
     Active Substance: CEFTRIAXONE
  63. INDOMETHACIN [Concomitant]
     Active Substance: INDOMETHACIN
  64. PHENYTOIN [Concomitant]
     Active Substance: PHENYTOIN
  65. PROZAC [Concomitant]
     Active Substance: FLUOXETINE HYDROCHLORIDE

REACTIONS (4)
  - Chronic kidney disease [Not Recovered/Not Resolved]
  - End stage renal disease [Not Recovered/Not Resolved]
  - Acute kidney injury [Not Recovered/Not Resolved]
  - Renal failure [Unknown]

NARRATIVE: CASE EVENT DATE: 20110101
